FAERS Safety Report 7591841-0 (Version None)
Quarter: 2011Q2

REPORT INFORMATION
  Report Type: 
  Country: None (occurrence: None)
  Receive Date: 20110603
  Receipt Date: 20110221
  Transmission Date: 20111010
  Serious: No
  Sender: FDA-Public Use
  Company Number: 2011SP008181

PATIENT
  Age: 60 Year
  Sex: Female

DRUGS (10)
  1. QUINAPRIL HCL [Concomitant]
  2. LYRICA [Concomitant]
  3. LORATADINE [Concomitant]
  4. HYDROCHLOROTHIAZIDE [Concomitant]
  5. SAPHRIS [Suspect]
     Indication: BIPOLAR I DISORDER
     Dosage: 10 MG;BID;SL
     Route: 060
  6. PRAVASTATIN [Concomitant]
  7. NEXIUM [Concomitant]
  8. PAXIL [Concomitant]
  9. PROPRANOLOL [Concomitant]
  10. VALACYCLOVIR [Concomitant]

REACTIONS (3)
  - SPEECH DISORDER [None]
  - TACHYPHRENIA [None]
  - UNDERDOSE [None]
